FAERS Safety Report 4439182-4 (Version None)
Quarter: 2004Q3

REPORT INFORMATION
  Report Type: 
  Country: None (occurrence: None)
  Receive Date: 20040831
  Receipt Date: 20040823
  Transmission Date: 20050211
  Serious: Yes (Life-Threatening, Hospitalization)
  Sender: FDA-Public Use
  Company Number: 04-00492

PATIENT
  Age: 17 Year
  Sex: Female

DRUGS (1)
  1. PROPYL-THIOURACIL [Suspect]
     Indication: BASEDOW'S DISEASE
     Dosage: 150MG, THREE TIMES A DAY, ORAL
     Route: 048
     Dates: start: 20010501, end: 20011101

REACTIONS (10)
  - CHOLESTASIS [None]
  - DRUG TOXICITY [None]
  - ENCEPHALOPATHY [None]
  - HEPATIC FAILURE [None]
  - HEPATIC NECROSIS [None]
  - HEPATITIS ACUTE [None]
  - HEPATITIS FULMINANT [None]
  - HEPATOCELLULAR DAMAGE [None]
  - HYPOGLYCAEMIA [None]
  - LIVER TRANSPLANT [None]
